FAERS Safety Report 19915278 (Version 1)
Quarter: 2021Q4

REPORT INFORMATION
  Report Type: Spontaneous
  Country: US (occurrence: US)
  Receive Date: 20211004
  Receipt Date: 20211004
  Transmission Date: 20220303
  Serious: Yes (Other)
  Sender: FDA-Public Use
  Company Number: US-OTSUKA-2019_030166

PATIENT
  Age: 48 Year
  Sex: Female

DRUGS (3)
  1. ARIPIPRAZOLE [Suspect]
     Active Substance: ARIPIPRAZOLE
     Indication: Fragile X syndrome
     Dosage: 20 MG
     Route: 065
  2. ARIPIPRAZOLE [Suspect]
     Active Substance: ARIPIPRAZOLE
     Indication: Bipolar disorder
  3. LITHIUM [Suspect]
     Active Substance: LITHIUM
     Indication: Product used for unknown indication
     Dosage: UNKNOWN
     Route: 065

REACTIONS (8)
  - Suicidal ideation [Unknown]
  - Mydriasis [Unknown]
  - Emotional poverty [Unknown]
  - Adverse event [Unknown]
  - Hypoaesthesia [Unknown]
  - Gambling disorder [Unknown]
  - Economic problem [Unknown]
  - Product use in unapproved indication [Unknown]
